FAERS Safety Report 6914822-6 (Version None)
Quarter: 2010Q3

REPORT INFORMATION
  Report Type: 
  Country: None (occurrence: None)
  Receive Date: 20100809
  Receipt Date: 20100730
  Transmission Date: 20110219
  Serious: Yes (Hospitalization)
  Sender: FDA-Public Use
  Company Number: BR-MEDIMMUNE-MEDI-0011361

PATIENT
  Sex: Female
  Weight: 5.1 kg

DRUGS (7)
  1. SYNAGIS [Suspect]
     Dates: start: 20100319, end: 20100319
  2. SYNAGIS [Suspect]
     Indication: BRONCHOPULMONARY DYSPLASIA
  3. AD-TIL [Suspect]
     Indication: VITAMIN SUPPLEMENTATION
     Dosage: 2 DROPS
     Route: 048
  4. DOMPERIDONE [Concomitant]
     Route: 048
  5. FLUTICASONE PROPIONATE [Concomitant]
     Indication: TRACHEAL DILATATION
  6. FERROGLYCINATE CHELATE [Concomitant]
     Route: 048
  7. GEVITAL [Concomitant]
     Indication: VITAMIN SUPPLEMENTATION
     Route: 048

REACTIONS (5)
  - BRONCHOSPASM [None]
  - HYPOXIA [None]
  - INCREASED BRONCHIAL SECRETION [None]
  - INCREASED UPPER AIRWAY SECRETION [None]
  - OXYGEN SATURATION DECREASED [None]
